FAERS Safety Report 14794428 (Version 1)
Quarter: 2018Q2

REPORT INFORMATION
  Report Type: Spontaneous
  Country: DE (occurrence: DE)
  Receive Date: 20180423
  Receipt Date: 20180423
  Transmission Date: 20180711
  Serious: Yes (Hospitalization)
  Sender: FDA-Public Use
  Company Number: DE-BAYER-2018-072632

PATIENT
  Age: 80 Year
  Sex: Male
  Weight: 76 kg

DRUGS (4)
  1. RAMIPRIL. [Concomitant]
     Active Substance: RAMIPRIL
     Dosage: 5 MG, OM
     Route: 048
  2. ACETYLSALICYLIC ACID({=100 MG) [Suspect]
     Active Substance: ASPIRIN
     Dosage: 100 MG, OM
     Route: 048
  3. IBUPROFEN. [Suspect]
     Active Substance: IBUPROFEN
  4. AMLODIPIN [Concomitant]
     Active Substance: AMLODIPINE BESYLATE
     Dosage: 5 MG, OM
     Route: 048

REACTIONS (4)
  - Haematochezia [Unknown]
  - Wrong drug administered [Unknown]
  - Drug prescribing error [Unknown]
  - Hyperhidrosis [Unknown]
